FAERS Safety Report 6606420-9 (Version None)
Quarter: 2010Q1

REPORT INFORMATION
  Report Type: 
  Country: None (occurrence: None)
  Receive Date: 20100226
  Receipt Date: 20100218
  Transmission Date: 20100710
  Serious: Yes (Hospitalization)
  Sender: FDA-Public Use
  Company Number: DE-ASTRAZENECA-2010SE07408

PATIENT
  Age: 54 Year
  Sex: Female

DRUGS (11)
  1. SEROQUEL [Suspect]
     Route: 048
     Dates: start: 20090828
  2. SEROQUEL [Suspect]
     Route: 048
     Dates: start: 20090829, end: 20090830
  3. SEROQUEL [Suspect]
     Route: 048
     Dates: start: 20090831, end: 20090914
  4. SEROQUEL [Suspect]
     Route: 048
     Dates: start: 20090915, end: 20090917
  5. SEROQUEL [Suspect]
     Route: 048
     Dates: start: 20090918, end: 20090920
  6. SEROQUEL [Suspect]
     Route: 048
     Dates: start: 20090921, end: 20090923
  7. CYMBALTA [Suspect]
     Route: 048
     Dates: end: 20090827
  8. CYMBALTA [Suspect]
     Route: 048
     Dates: start: 20090828
  9. BELOC-ZOK [Concomitant]
     Route: 048
  10. GODAMED [Concomitant]
     Route: 048
  11. PANTOZOL [Concomitant]
     Route: 048
     Dates: start: 20090903

REACTIONS (1)
  - LIVER FUNCTION TEST ABNORMAL [None]
